FAERS Safety Report 5255711-5 (Version None)
Quarter: 2007Q1

REPORT INFORMATION
  Report Type: 
  Country: None (occurrence: None)
  Receive Date: 20070305
  Receipt Date: 20070221
  Transmission Date: 20070707
  Serious: Yes (Hospitalization)
  Sender: FDA-Public Use
  Company Number: PFIZER INC-2007014554

PATIENT
  Age: 63 Year
  Sex: Female

DRUGS (4)
  1. DILANTIN [Suspect]
     Indication: CONVULSION
  2. NAMENDA [Suspect]
     Indication: DEMENTIA ALZHEIMER'S TYPE
  3. ARICEPT [Suspect]
     Indication: DEMENTIA ALZHEIMER'S TYPE
  4. KEPPRA [Suspect]
     Indication: CONVULSION

REACTIONS (4)
  - AGITATION [None]
  - CONVULSION [None]
  - LETHARGY [None]
  - URINARY TRACT INFECTION [None]
